FAERS Safety Report 23824057 (Version 1)
Quarter: 2024Q2

REPORT INFORMATION
  Report Type: Spontaneous
  Country: US (occurrence: US)
  Receive Date: 20240507
  Receipt Date: 20240507
  Transmission Date: 20240717
  Serious: No
  Sender: FDA-Public Use
  Company Number: US-UCBSA-2023052058

PATIENT
  Sex: Male

DRUGS (3)
  1. CIMZIA [Suspect]
     Active Substance: CERTOLIZUMAB PEGOL
     Indication: Product used for unknown indication
     Dosage: UNK
  2. LEVOTHYROXINE [Concomitant]
     Active Substance: LEVOTHYROXINE\LEVOTHYROXINE SODIUM
     Indication: Product used for unknown indication
     Dosage: UNK
  3. TACROLIMUS [Concomitant]
     Active Substance: TACROLIMUS
     Indication: Psoriasis
     Dosage: UNK
     Route: 061

REACTIONS (2)
  - Arthritis [Not Recovered/Not Resolved]
  - Insomnia [Recovering/Resolving]
